FAERS Safety Report 9300457 (Version 1)
Quarter: 2013Q1

REPORT INFORMATION
  Report Type: Spontaneous
  Country: US (occurrence: None)
  Receive Date: 20130107
  Receipt Date: 20130107
  Transmission Date: 20140127
  Serious: Yes (Other)
  Sender: FDA-Public Use
  Company Number: PHEH2012US020414

PATIENT
  Age: 41 Year
  Sex: Female
  Weight: 97.52 kg

DRUGS (3)
  1. GILENYA (FINGOLIMOD) CAPSULE0.5MG [Suspect]
     Indication: MULTIPLE SCLEROSIS
     Route: 048
     Dates: start: 20110630
  2. VITAMIN B12 (CYANOCOBALAMIN) [Concomitant]
  3. VITAMIN D3 (COLECALCIFEROL) [Concomitant]

REACTIONS (2)
  - Herpes zoster [None]
  - Rash [None]
